FAERS Safety Report 6831294-0 (Version None)
Quarter: 2010Q3

REPORT INFORMATION
  Report Type: 
  Country: None (occurrence: None)
  Receive Date: 20100712
  Receipt Date: 20100630
  Transmission Date: 20110219
  Serious: Yes (Hospitalization, Other)
  Sender: FDA-Public Use
  Company Number: ES-PFIZER INC-2010081817

PATIENT
  Age: 25 Year
  Sex: Female

DRUGS (6)
  1. ZELDOX [Suspect]
     Indication: SCHIZOPHRENIA
     Dosage: 140 MG/DAY (60 MG IN AM + 80 MG AT PM)
     Route: 048
     Dates: start: 20090101, end: 20090101
  2. ZELDOX [Suspect]
     Dosage: 140 MG/DAY (60 MG AT AM + 80 MG AT PM)
     Route: 048
     Dates: start: 20090101
  3. ZELDOX [Suspect]
     Dosage: 60 MG, 2X/DAY
     Route: 048
  4. ZELDOX [Suspect]
     Dosage: 40 MG, 2X/DAY
     Route: 048
  5. ZELDOX [Suspect]
     Dosage: 40 MG/DAY
     Route: 048
  6. LEVOTHYROXINE SODIUM [Concomitant]
     Indication: HYPOTHYROIDISM
     Dosage: UNK

REACTIONS (3)
  - DYSTONIA [None]
  - SEPTIC SHOCK [None]
  - TOOTH INFECTION [None]
